FAERS Safety Report 11161902 (Version 1)
Quarter: 2015Q2

REPORT INFORMATION
  Report Type: Spontaneous
  Country: US (occurrence: US)
  Receive Date: 20150604
  Receipt Date: 20150604
  Transmission Date: 20150821
  Serious: No
  Sender: FDA-Public Use
  Company Number: US-SA-2014SA099027

PATIENT

DRUGS (2)
  1. METFORMIN [Concomitant]
     Active Substance: METFORMIN HYDROCHLORIDE
  2. LANTUS [Suspect]
     Active Substance: INSULIN GLARGINE
     Indication: PRODUCT USED FOR UNKNOWN INDICATION
     Route: 065

REACTIONS (6)
  - Erythema [Unknown]
  - Contusion [Unknown]
  - Injection site mass [Recovering/Resolving]
  - Injection site pruritus [Unknown]
  - Injection site haemorrhage [Unknown]
  - Blood glucose increased [Unknown]
